FAERS Safety Report 19588593 (Version 1)
Quarter: 2021Q3

REPORT INFORMATION
  Report Type: Spontaneous
  Country: US (occurrence: US)
  Receive Date: 20210721
  Receipt Date: 20210721
  Transmission Date: 20211014
  Serious: No
  Sender: FDA-Public Use
  Company Number: US-ELI_LILLY_AND_COMPANY-US202107009014

PATIENT
  Age: 79 Year
  Sex: Female

DRUGS (16)
  1. LASIX [Concomitant]
     Active Substance: FUROSEMIDE
     Indication: TYPE 2 DIABETES MELLITUS
     Dosage: 20 MG, BID
  2. CALCIUM [Concomitant]
     Active Substance: CALCIUM
     Indication: TYPE 2 DIABETES MELLITUS
     Dosage: 450 MG, BID
  3. BASAGLAR [Suspect]
     Active Substance: INSULIN GLARGINE
     Indication: TYPE 2 DIABETES MELLITUS
     Dosage: 35 U, DAILY
     Route: 065
     Dates: start: 2018
  4. BASAGLAR [Suspect]
     Active Substance: INSULIN GLARGINE
     Indication: TYPE 2 DIABETES MELLITUS
     Dosage: 35 U, DAILY
     Route: 065
     Dates: start: 2018
  5. VITAMIN D3 [Concomitant]
     Active Substance: CHOLECALCIFEROL
     Indication: TYPE 2 DIABETES MELLITUS
     Dosage: 1 DOSAGE FORM, EACH MORNING
  6. SIMVASTATIN. [Concomitant]
     Active Substance: SIMVASTATIN
     Indication: TYPE 2 DIABETES MELLITUS
     Dosage: 40 MG, DAILY AT BEDTIME
  7. METOPROLOL. [Concomitant]
     Active Substance: METOPROLOL
     Indication: TYPE 2 DIABETES MELLITUS
     Dosage: 100 MG, BID
  8. ELIQUIS [Concomitant]
     Active Substance: APIXABAN
     Indication: TYPE 2 DIABETES MELLITUS
     Dosage: 5 MG, BID
  9. OMEGA 3 [FISH OIL] [Concomitant]
     Active Substance: FISH OIL
     Indication: TYPE 2 DIABETES MELLITUS
     Dosage: 2 DOSAGE FORM, EACH MORNING
  10. OMEGA 3 [FISH OIL] [Concomitant]
     Active Substance: FISH OIL
     Dosage: 2 DOSAGE FORM, EACH EVENING
  11. BASAGLAR [Suspect]
     Active Substance: INSULIN GLARGINE
     Dosage: 50 U, DAILY
     Route: 065
     Dates: start: 2018
  12. BASAGLAR [Suspect]
     Active Substance: INSULIN GLARGINE
     Dosage: 50 U, DAILY
     Route: 065
     Dates: start: 2018
  13. MAGNESIUM [Concomitant]
     Active Substance: MAGNESIUM
     Indication: TYPE 2 DIABETES MELLITUS
     Dosage: 400 MG, EACH MORNING
  14. GLIMEPIRIDE. [Concomitant]
     Active Substance: GLIMEPIRIDE
     Indication: TYPE 2 DIABETES MELLITUS
  15. LISINOPRIL. [Concomitant]
     Active Substance: LISINOPRIL
     Indication: TYPE 2 DIABETES MELLITUS
     Dosage: 20 MG, EACH MORNING
  16. ASPIRIN 81 [Concomitant]
     Active Substance: ASPIRIN
     Indication: TYPE 2 DIABETES MELLITUS
     Dosage: 81 MG, DAILY AT BEDTIME

REACTIONS (3)
  - Blood glucose increased [Unknown]
  - Hypoacusis [Unknown]
  - Injury associated with device [Unknown]

NARRATIVE: CASE EVENT DATE: 20210720
